FAERS Safety Report 10543461 (Version 2)
Quarter: 2014Q4

REPORT INFORMATION
  Report Type: Spontaneous
  Country: US (occurrence: None)
  Receive Date: 20141023
  Receipt Date: 20141230
  Transmission Date: 20150529
  Serious: Yes (Life-Threatening, Hospitalization)
  Sender: FDA-Public Use
  Company Number: MIN-00994

PATIENT
  Age: 59 Year
  Sex: Female
  Weight: 71.7 kg

DRUGS (1)
  1. MINOCYCLINE 100MG GENERIC [Suspect]
     Active Substance: MINOCYCLINE HYDROCHLORIDE
     Indication: ACNE
     Route: 048
     Dates: start: 201401, end: 201402

REACTIONS (13)
  - Ocular icterus [None]
  - Blood bilirubin increased [None]
  - Hepatic encephalopathy [None]
  - Transaminases increased [None]
  - Hypoalbuminaemia [None]
  - Hepato-lenticular degeneration [None]
  - International normalised ratio increased [None]
  - Heart rate increased [None]
  - Abdominal distension [None]
  - Oedema [None]
  - Continuous haemodiafiltration [None]
  - Liver transplant [None]
  - Anaemia [None]

NARRATIVE: CASE EVENT DATE: 20140210
